FAERS Safety Report 7965391-3 (Version None)
Quarter: 2011Q4

REPORT INFORMATION
  Report Type: 
  Country: None (occurrence: None)
  Receive Date: 20111208
  Receipt Date: 20111125
  Transmission Date: 20120403
  Serious: Yes (Death, Hospitalization, Other)
  Sender: FDA-Public Use
  Company Number: KR-ACTELION-A-CH2011-57558

PATIENT
  Sex: Female
  Weight: 50 kg

DRUGS (1)
  1. TRACLEER [Suspect]
     Indication: PULMONARY ARTERIAL HYPERTENSION
     Dosage: 125 MG, BID
     Route: 048
     Dates: start: 20070608, end: 20111011

REACTIONS (13)
  - SYNCOPE [None]
  - HYPOXIA [None]
  - CENTRAL VENOUS CATHETERISATION [None]
  - LIVER FUNCTION TEST ABNORMAL [None]
  - PULMONARY ARTERIAL HYPERTENSION [None]
  - ENDOTRACHEAL INTUBATION [None]
  - DYSPNOEA [None]
  - ALANINE AMINOTRANSFERASE INCREASED [None]
  - HYPOTENSION [None]
  - ASPARTATE AMINOTRANSFERASE INCREASED [None]
  - CONDITION AGGRAVATED [None]
  - BLOOD PRESSURE DECREASED [None]
  - GAMMA-GLUTAMYLTRANSFERASE INCREASED [None]
